FAERS Safety Report 4354807-X (Version None)
Quarter: 2004Q2

REPORT INFORMATION
  Report Type: 
  Country: None (occurrence: None)
  Receive Date: 20040507
  Receipt Date: 20030523
  Transmission Date: 20050107
  Serious: Yes (Other)
  Sender: FDA-Public Use
  Company Number: US-ROCHE-338797

PATIENT
  Age: 16 Year
  Sex: Female

DRUGS (3)
  1. ACCUTANE [Suspect]
     Indication: ACNE
     Route: 048
     Dates: start: 20030201, end: 20030315
  2. MINOCIN [Suspect]
     Indication: DRUG USE FOR UNKNOWN INDICATION
     Route: 048
     Dates: end: 20021126
  3. BIRTH CONTROL PILLS [Concomitant]
     Route: 048

REACTIONS (3)
  - AUTOIMMUNE HEPATITIS [None]
  - FATIGUE [None]
  - LIVER FUNCTION TEST ABNORMAL [None]
